FAERS Safety Report 9964220 (Version 2)
Quarter: 2014Q1

REPORT INFORMATION
  Report Type: Report from Study
  Country: AU (occurrence: AU)
  Receive Date: 20140305
  Receipt Date: 20140305
  Transmission Date: 20141002
  Serious: Yes (Hospitalization, Other)
  Sender: FDA-Public Use
  Company Number: PHHY2014AU007840

PATIENT
  Age: 56 Year
  Sex: Female

DRUGS (4)
  1. CLOZARIL [Suspect]
     Dosage: 150 MG, UNK
     Dates: start: 19960613
  2. CLOZARIL [Suspect]
     Dosage: UNK UKN, UNK
     Dates: start: 20140106
  3. PALIPERIDONE [Concomitant]
     Indication: SCHIZOPHRENIA
     Dosage: 100 MG, MONTHLY
     Route: 030
  4. PALIPERIDONE [Concomitant]
     Dosage: 150 MG, MONTHLY

REACTIONS (6)
  - Anxiety [Recovering/Resolving]
  - Delusion [Recovering/Resolving]
  - Agitation [Recovering/Resolving]
  - Hypertension [Recovering/Resolving]
  - Sedation [Recovering/Resolving]
  - Antipsychotic drug level below therapeutic [Unknown]
